FAERS Safety Report 5953550-0 (Version None)
Quarter: 2008Q4

REPORT INFORMATION
  Report Type: 
  Country: None (occurrence: None)
  Receive Date: 20081114
  Receipt Date: 20081023
  Transmission Date: 20090506
  Serious: No
  Sender: FDA-Public Use
  Company Number: US-BAYER-200836621NA

PATIENT
  Age: 37 Year
  Sex: Female
  Weight: 62 kg

DRUGS (3)
  1. MAGNEVIST [Suspect]
     Indication: NUCLEAR MAGNETIC RESONANCE IMAGING
     Dosage: TOTAL DAILY DOSE: 20 ML  UNIT DOSE: 50 ML
     Route: 042
     Dates: start: 20081023, end: 20081023
  2. PREDNISONE TAB [Concomitant]
     Dosage: AS USED: 40 MG
     Dates: start: 20081022, end: 20081023
  3. PREDNISONE TAB [Concomitant]
     Dosage: AS USED: 40 MG
     Dates: start: 20081023, end: 20081023

REACTIONS (2)
  - THROAT IRRITATION [None]
  - URTICARIA [None]
